FAERS Safety Report 6263198-9 (Version None)
Quarter: 2009Q3

REPORT INFORMATION
  Report Type: 
  Country: None (occurrence: None)
  Receive Date: 20090710
  Receipt Date: 20090706
  Transmission Date: 20100115
  Serious: Yes (Disabling)
  Sender: FDA-Public Use
  Company Number: IT-EISAI INC.-E7867-00049-SPO-IT

PATIENT
  Sex: Male

DRUGS (1)
  1. GLIADEL [Suspect]
     Indication: MALIGNANT GLIOMA
     Route: 018
     Dates: start: 20090402

REACTIONS (1)
  - ENCEPHALOPATHY [None]
